FAERS Safety Report 6286360-8 (Version None)
Quarter: 2009Q3

REPORT INFORMATION
  Report Type: 
  Country: None (occurrence: None)
  Receive Date: 20090724
  Receipt Date: 20090708
  Transmission Date: 20100115
  Serious: Yes (Disabling)
  Sender: FDA-Public Use
  Company Number: APP200900399

PATIENT
  Age: 56 Year
  Sex: Female

DRUGS (4)
  1. SENSORCAINE [Suspect]
     Indication: MUSCULOSKELETAL PAIN
     Dosage: CONTINUOUS VIA PUMP RIGHT SHOULDER, INTRA-ARTICULAR
     Route: 014
     Dates: start: 20000406
  2. STRYKER PAIN PUMP [Suspect]
     Indication: MUSCULOSKELETAL PAIN
     Dates: start: 20000406
  3. ANESTHETIC [Suspect]
     Indication: MUSCULOSKELETAL PAIN
     Dosage: CONTINUOUS VIA PMUP LEFT SHOULDER, INTRA-ARTICULAR
     Route: 014
     Dates: start: 20010104
  4. PAIN PUMP [Suspect]
     Indication: MUSCULOSKELETAL PAIN
     Dates: start: 20010104

REACTIONS (2)
  - JOINT INJURY [None]
  - MUSCULOSKELETAL PAIN [None]
